FAERS Safety Report 25500018 (Version 3)
Quarter: 2025Q3

REPORT INFORMATION
  Report Type: Spontaneous
  Country: GB (occurrence: GB)
  Receive Date: 20250701
  Receipt Date: 20250819
  Transmission Date: 20251021
  Serious: Yes (Hospitalization)
  Sender: MYLAN
  Company Number: GB-MYLANLABS-2025M1054632

PATIENT
  Sex: Male

DRUGS (8)
  1. CLOZARIL [Suspect]
     Active Substance: CLOZAPINE
     Indication: Schizophrenia
     Route: 048
  2. CLOZARIL [Suspect]
     Active Substance: CLOZAPINE
  3. CLOZARIL [Suspect]
     Active Substance: CLOZAPINE
  4. CLOZARIL [Suspect]
     Active Substance: CLOZAPINE
     Route: 048
  5. CLOZARIL [Suspect]
     Active Substance: CLOZAPINE
     Route: 048
  6. CLOZARIL [Suspect]
     Active Substance: CLOZAPINE
  7. CLOZARIL [Suspect]
     Active Substance: CLOZAPINE
  8. CLOZARIL [Suspect]
     Active Substance: CLOZAPINE
     Route: 048

REACTIONS (4)
  - Suicidal ideation [Unknown]
  - Patient elopement [Recovered/Resolved]
  - Differential white blood cell count abnormal [Unknown]
  - Product availability issue [Unknown]

NARRATIVE: CASE EVENT DATE: 20250622
